FAERS Safety Report 14507169 (Version 1)
Quarter: 2018Q1

REPORT INFORMATION
  Report Type: Spontaneous
  Country: NO (occurrence: NO)
  Receive Date: 20180208
  Receipt Date: 20180208
  Transmission Date: 20180509
  Serious: Yes (Congenital Anomaly)
  Sender: FDA-Public Use
  Company Number: NO-ELI_LILLY_AND_COMPANY-NO201801013246

PATIENT
  Age: 6 Month

DRUGS (2)
  1. ZYPADHERA [Suspect]
     Active Substance: OLANZAPINE PAMOATE
     Indication: PRODUCT USED FOR UNKNOWN INDICATION
     Dosage: 300 MG, EVERY 14 DAYS
     Route: 064
  2. ZYPADHERA [Suspect]
     Active Substance: OLANZAPINE PAMOATE
     Indication: PRODUCT USED FOR UNKNOWN INDICATION
     Dosage: 300 MG, EVERY 14 DAYS
     Route: 064

REACTIONS (6)
  - Foetal exposure during pregnancy [Not Recovered/Not Resolved]
  - Deafness neurosensory [Not Recovered/Not Resolved]
  - Hypermetropia [Not Recovered/Not Resolved]
  - Exposure via breast milk [Unknown]
  - Astigmatism [Not Recovered/Not Resolved]
  - Poor feeding infant [Not Recovered/Not Resolved]
